FAERS Safety Report 7742477-X (Version None)
Quarter: 2011Q3

REPORT INFORMATION
  Report Type: 
  Country: None (occurrence: None)
  Receive Date: 20110912
  Receipt Date: 20110902
  Transmission Date: 20111222
  Serious: Yes (Hospitalization)
  Sender: FDA-Public Use
  Company Number: PH-ASTELLAS-2011US005635

PATIENT
  Sex: Female

DRUGS (7)
  1. FERROUS SULFATE TAB [Concomitant]
     Indication: PRODUCT USED FOR UNKNOWN INDICATION
     Dosage: UNK
     Route: 065
     Dates: start: 20100216
  2. GEMCITABINE [Suspect]
     Indication: NON-SMALL CELL LUNG CANCER
     Dosage: 1800 MG, ONCE
     Route: 042
     Dates: start: 20091208
  3. ERLOTINIB HYDROCHLORIDE [Suspect]
     Indication: NON-SMALL CELL LUNG CANCER
     Dosage: UNK
     Route: 048
     Dates: start: 20091229
  4. GEMCITABINE [Suspect]
     Dosage: 1800 MG
     Route: 042
     Dates: start: 20100318
  5. CARBOPLATIN [Suspect]
     Indication: NON-SMALL CELL LUNG CANCER
     Dosage: 430 MG, ONCE
     Route: 042
     Dates: start: 20091208
  6. CARBOPLATIN [Suspect]
     Dosage: 430 MG, ONCE
     Route: 042
  7. MULTI-VITAMIN [Concomitant]
     Indication: PRODUCT USED FOR UNKNOWN INDICATION
     Dosage: UNK
     Route: 065
     Dates: start: 20100112

REACTIONS (1)
  - ANAEMIA [None]
